FAERS Safety Report 9353359 (Version 2)
Quarter: 2013Q2

REPORT INFORMATION
  Report Type: Spontaneous
  Country: FR (occurrence: FR)
  Receive Date: 20130618
  Receipt Date: 20130624
  Transmission Date: 20140414
  Serious: Yes (Death)
  Sender: FDA-Public Use
  Company Number: FR-PFIZER INC-2013180543

PATIENT
  Age: 68 Year
  Sex: Male

DRUGS (4)
  1. ZOLOFT [Suspect]
     Indication: DEPRESSION
     Dosage: 50 MG, 2X/DAY
     Route: 048
     Dates: start: 20071011, end: 20071025
  2. LEXOMIL [Suspect]
     Indication: DEPRESSION
     Dosage: 1.5 MG, 1.5 MG, 4.5 MG
     Route: 048
     Dates: start: 20071022, end: 20071025
  3. LYSANXIA [Concomitant]
     Indication: DEPRESSION
     Dosage: 6 MG, UNK
     Dates: start: 20071011, end: 20071021
  4. IMOVANE [Concomitant]
     Indication: DEPRESSION
     Dosage: 3.75 MG, 1X/DAY
     Dates: start: 20071011, end: 20071025

REACTIONS (1)
  - Completed suicide [Fatal]
